FAERS Safety Report 14140294 (Version 1)
Quarter: 2017Q4

REPORT INFORMATION
  Report Type: Report from Study
  Country: US (occurrence: US)
  Receive Date: 20171030
  Receipt Date: 20171030
  Transmission Date: 20180321
  Serious: Yes (Hospitalization, Other)
  Sender: FDA-Public Use
  Company Number: US-GILEAD-2017-0300195

PATIENT
  Age: 74 Year
  Sex: Female
  Weight: 88 kg

DRUGS (11)
  1. AMBRISENTAN [Suspect]
     Active Substance: AMBRISENTAN
     Indication: PULMONARY ARTERIAL HYPERTENSION
     Dosage: 5 MG, UNK
     Route: 048
     Dates: start: 20171011, end: 20171015
  2. LIPITEROL [Concomitant]
  3. ACETAMINOPHEN. [Concomitant]
     Active Substance: ACETAMINOPHEN
  4. ZEBETA [Concomitant]
     Active Substance: BISOPROLOL FUMARATE
  5. WARFARIN [Concomitant]
     Active Substance: WARFARIN
  6. ASA [Concomitant]
     Active Substance: ASPIRIN
  7. PROZAC [Concomitant]
     Active Substance: FLUOXETINE HYDROCHLORIDE
  8. POTASSIUM CHLORIDE. [Concomitant]
     Active Substance: POTASSIUM CHLORIDE
  9. IRON [Concomitant]
     Active Substance: IRON
  10. COSARTAN                           /01121602/ [Concomitant]
  11. PRILOSEC [Concomitant]
     Active Substance: OMEPRAZOLE MAGNESIUM

REACTIONS (4)
  - Oedema [Unknown]
  - Cardiac failure acute [Recovered/Resolved]
  - Fluid retention [Unknown]
  - Acute respiratory failure [Recovered/Resolved]

NARRATIVE: CASE EVENT DATE: 20171013
